FAERS Safety Report 21510087 (Version 1)
Quarter: 2022Q4

REPORT INFORMATION
  Report Type: Spontaneous
  Country: US (occurrence: US)
  Receive Date: 20221026
  Receipt Date: 20221026
  Transmission Date: 20230112
  Serious: Yes (Hospitalization)
  Sender: FDA-Public Use
  Company Number: US-MAYNE PHARMA-2022MYN000593

PATIENT
  Age: 53 Year
  Sex: Female

DRUGS (1)
  1. CLOZAPINE [Suspect]
     Active Substance: CLOZAPINE
     Indication: Product used for unknown indication
     Dosage: 100 MG, QD

REACTIONS (2)
  - Diabetes mellitus [Unknown]
  - Living in residential institution [Unknown]

NARRATIVE: CASE EVENT DATE: 20220301
